FAERS Safety Report 6650315-1 (Version None)
Quarter: 2010Q1

REPORT INFORMATION
  Report Type: 
  Country: None (occurrence: None)
  Receive Date: 20100325
  Receipt Date: 20100315
  Transmission Date: 20100710
  Serious: Yes (Other)
  Sender: FDA-Public Use
  Company Number: PHEH1999US16370

PATIENT
  Age: 33 Year
  Sex: Female

DRUGS (5)
  1. TEGRETOL [Suspect]
     Route: 048
     Dates: start: 19680101
  2. FOLIC ACID [Concomitant]
     Route: 048
  3. SYNTHROID [Concomitant]
     Route: 048
     Dates: start: 19970101
  4. MULTI-VITAMINS [Concomitant]
     Route: 048
  5. DEPAKOTE [Concomitant]
     Route: 048
     Dates: start: 19900101

REACTIONS (2)
  - ABORTION SPONTANEOUS [None]
  - DRUG EXPOSURE DURING PREGNANCY [None]
